FAERS Safety Report 5720562-1 (Version None)
Quarter: 2008Q2

REPORT INFORMATION
  Report Type: 
  Country: None (occurrence: None)
  Receive Date: 20080428
  Receipt Date: 20080428
  Transmission Date: 20081010
  Serious: Yes (Life-Threatening, Other)
  Sender: FDA-Public Use
  Company Number: None

PATIENT
  Age: 59 Year
  Sex: Male
  Weight: 88.905 kg

DRUGS (1)
  1. AMLODIPINE BESYLATE 5MG GREENSTONE LTD [Suspect]
     Indication: HYPERTENSION
     Dosage: 5MG DAILY PO
     Route: 048

REACTIONS (2)
  - BLOOD PRESSURE INCREASED [None]
  - THERAPEUTIC RESPONSE UNEXPECTED WITH DRUG SUBSTITUTION [None]
